FAERS Safety Report 16077924 (Version 3)
Quarter: 2019Q1

REPORT INFORMATION
  Report Type: Spontaneous
  Country: US (occurrence: US)
  Receive Date: 20190315
  Receipt Date: 20190327
  Transmission Date: 20190418
  Serious: No
  Sender: FDA-Public Use
  Company Number: US-IPSEN BIOPHARMACEUTICALS, INC.-2019-03884

PATIENT
  Sex: Female

DRUGS (2)
  1. DYSPORT [Suspect]
     Active Substance: ABOBOTULINUMTOXINA
     Indication: OFF LABEL USE
  2. DYSPORT [Suspect]
     Active Substance: ABOBOTULINUMTOXINA
     Indication: SKIN WRINKLING
     Dosage: (25 UNITS) FOREHEAD, 300 UNIT VIAL WAS DILUTED IN 3CC OF SODIUM CHLORIDE
     Route: 065
     Dates: start: 20190301, end: 20190301

REACTIONS (4)
  - Off label use [Unknown]
  - Product preparation error [Unknown]
  - Rash papular [Not Recovered/Not Resolved]
  - Face oedema [Recovered/Resolved]

NARRATIVE: CASE EVENT DATE: 20190301
